FAERS Safety Report 4503459-4 (Version None)
Quarter: 2004Q4

REPORT INFORMATION
  Report Type: 
  Country: None (occurrence: None)
  Receive Date: 20041112
  Receipt Date: 20041101
  Transmission Date: 20050328
  Serious: Yes (Hospitalization)
  Sender: FDA-Public Use
  Company Number: US-2004-034443

PATIENT
  Age: 60 Year
  Sex: Female

DRUGS (1)
  1. BETASERON [Suspect]
     Indication: MULTIPLE SCLEROSIS
     Dosage: EVERY 2 D, SUBCUTANEOUS
     Route: 058
     Dates: start: 20020306

REACTIONS (6)
  - CHOKING [None]
  - DYSPHAGIA [None]
  - FALL [None]
  - FEEDING DISORDER [None]
  - HIP FRACTURE [None]
  - TREMOR [None]
